FAERS Safety Report 8408203-6 (Version None)
Quarter: 2012Q2

REPORT INFORMATION
  Report Type: 
  Country: None (occurrence: None)
  Receive Date: 20120531
  Receipt Date: 20120531
  Transmission Date: 20120825
  Serious: Yes (Other)
  Sender: FDA-Public Use
  Company Number: None

PATIENT
  Age: 49 Year
  Sex: Female
  Weight: 61.2356 kg

DRUGS (1)
  1. OXYCODONE HCL AND ACETAMINOPHEN [Suspect]
     Indication: INTERVERTEBRAL DISC DISORDER
     Dosage: 4X DAILY
     Dates: start: 20120503, end: 20120603

REACTIONS (2)
  - LABORATORY TEST INTERFERENCE [None]
  - DRUG SCREEN POSITIVE [None]
